FAERS Safety Report 19934016 (Version 1)
Quarter: 2021Q4

REPORT INFORMATION
  Report Type: Spontaneous
  Country: US (occurrence: US)
  Receive Date: 20211008
  Receipt Date: 20211008
  Transmission Date: 20220304
  Serious: No
  Sender: FDA-Public Use
  Company Number: US-PFIZER INC-202101179115

PATIENT
  Age: 78 Year
  Sex: Male
  Weight: 99.79 kg

DRUGS (4)
  1. GABAPENTIN [Suspect]
     Active Substance: GABAPENTIN
     Indication: Bipolar disorder
     Dosage: 600 MG, CYCLIC(EVERY 2 OR 3 HOURS)/TAKING 14 CAPSULES A DAY
     Route: 048
     Dates: start: 2001
  2. GABAPENTIN [Suspect]
     Active Substance: GABAPENTIN
     Indication: Neuropathy peripheral
  3. GABAPENTIN [Suspect]
     Active Substance: GABAPENTIN
     Indication: Nerve injury
  4. PEPCID [Concomitant]
     Active Substance: FAMOTIDINE
     Indication: Dyspepsia
     Dosage: UNK

REACTIONS (4)
  - Illness [Unknown]
  - Off label use [Unknown]
  - Drug ineffective for unapproved indication [Unknown]
  - Overdose [Unknown]
